FAERS Safety Report 14499228 (Version 1)
Quarter: 2018Q1

REPORT INFORMATION
  Report Type: Spontaneous
  Country: US (occurrence: US)
  Receive Date: 20180207
  Receipt Date: 20180207
  Transmission Date: 20180509
  Serious: No
  Sender: FDA-Public Use
  Company Number: US-JAZZ-2017-US-002081

PATIENT
  Age: 54 Year
  Sex: Male

DRUGS (12)
  1. PRIALT [Suspect]
     Active Substance: ZICONOTIDE ACETATE
     Indication: LUMBAR RADICULOPATHY
     Dosage: 0.978 ?G, QH
     Route: 037
     Dates: start: 201609, end: 201609
  2. PRIALT [Suspect]
     Active Substance: ZICONOTIDE ACETATE
     Dosage: 0.978 ?G, QH
     Route: 037
     Dates: start: 201609
  3. BACLOFEN. [Suspect]
     Active Substance: BACLOFEN
     Dosage: 10.55?G, QH
     Route: 037
     Dates: start: 201609, end: 201609
  4. MORPHINE [Suspect]
     Active Substance: MORPHINE
     Dosage: 0.083 MG, QH
     Route: 037
     Dates: start: 201609
  5. BACLOFEN. [Suspect]
     Active Substance: BACLOFEN
     Indication: MUSCLE SPASTICITY
     Dosage: 99.9 ?G, QD
     Route: 037
  6. MORPHINE [Suspect]
     Active Substance: MORPHINE
     Indication: MUSCLE SPASTICITY
     Dosage: 0.199 MG, QD
     Route: 037
  7. MORPHINE [Suspect]
     Active Substance: MORPHINE
     Indication: LUMBAR RADICULOPATHY
     Dosage: 0.083 MG, QH
     Route: 037
     Dates: start: 201609, end: 201609
  8. PRIALT [Suspect]
     Active Substance: ZICONOTIDE ACETATE
     Indication: MUSCLE SPASTICITY
     Dosage: 0.145 ?G, QH
     Route: 037
  9. PRIALT [Suspect]
     Active Substance: ZICONOTIDE ACETATE
     Dosage: 0.124 ?G, QH
     Route: 048
     Dates: start: 201609, end: 201609
  10. BACLOFEN. [Suspect]
     Active Substance: BACLOFEN
     Indication: LUMBAR RADICULOPATHY
     Dosage: 83.275 ?G, QH
     Route: 037
     Dates: start: 201609, end: 201609
  11. MORPHINE [Suspect]
     Active Substance: MORPHINE
     Dosage: 0.010 MG, QH
     Route: 037
     Dates: start: 201609, end: 201609
  12. BACLOFEN. [Suspect]
     Active Substance: BACLOFEN
     Dosage: 83.275 ?G, QH
     Route: 037
     Dates: start: 201609

REACTIONS (7)
  - Bladder disorder [Unknown]
  - Muscular weakness [Unknown]
  - Neurological symptom [Unknown]
  - Malaise [Unknown]
  - Nausea [Unknown]
  - Head discomfort [Unknown]
  - Hypoaesthesia [Unknown]

NARRATIVE: CASE EVENT DATE: 20160202
